FAERS Safety Report 11279335 (Version 1)
Quarter: 2015Q3

REPORT INFORMATION
  Report Type: Spontaneous
  Country: US (occurrence: None)
  Receive Date: 20150716
  Receipt Date: 20150716
  Transmission Date: 20151125
  Serious: Yes (Other)
  Sender: FDA-Public Use
  Company Number: None

PATIENT
  Age: 73 Year
  Sex: Female

DRUGS (2)
  1. VENLAFAXINE [Suspect]
     Active Substance: VENLAFAXINE HYDROCHLORIDE
     Indication: ANXIETY
     Route: 048
     Dates: start: 20150417, end: 20150618
  2. VENLAFAXINE [Suspect]
     Active Substance: VENLAFAXINE HYDROCHLORIDE
     Indication: DEPRESSION
     Route: 048
     Dates: start: 20150417, end: 20150618

REACTIONS (7)
  - Memory impairment [None]
  - Irritability [None]
  - Anxiety [None]
  - Disturbance in attention [None]
  - Product substitution issue [None]
  - Anger [None]
  - Insomnia [None]

NARRATIVE: CASE EVENT DATE: 20150601
